FAERS Safety Report 5758791-3 (Version None)
Quarter: 2008Q2

REPORT INFORMATION
  Report Type: 
  Country: None (occurrence: None)
  Receive Date: 20080604
  Receipt Date: 20080529
  Transmission Date: 20081010
  Serious: Yes (Other)
  Sender: FDA-Public Use
  Company Number: CA-MERCK-0805CAN00006

PATIENT
  Age: 35 Year
  Sex: Female

DRUGS (3)
  1. SINGULAIR [Suspect]
     Indication: ASTHMA
     Route: 048
     Dates: start: 20070607, end: 20080409
  2. SINGULAIR [Suspect]
     Indication: RHINITIS SEASONAL
     Route: 048
     Dates: start: 20070607, end: 20080409
  3. CETIRIZINE HYDROCHLORIDE [Concomitant]
     Route: 065

REACTIONS (1)
  - SUICIDAL IDEATION [None]
